FAERS Safety Report 8597812-X (Version None)
Quarter: 2012Q3

REPORT INFORMATION
  Report Type: 
  Country: None (occurrence: None)
  Receive Date: 20120816
  Receipt Date: 20120813
  Transmission Date: 20120928
  Serious: Yes (Other)
  Sender: FDA-Public Use
  Company Number: PHHY2012IT070376

PATIENT
  Age: 67 Year
  Sex: Male

DRUGS (1)
  1. ZOLEDRONIC ACID [Suspect]
     Dosage: UNK
     Route: 042
     Dates: start: 20050801, end: 20060901

REACTIONS (5)
  - TOOTH DISORDER [None]
  - BONE SWELLING [None]
  - EXPOSED BONE IN JAW [None]
  - PAIN IN JAW [None]
  - OSTEONECROSIS OF JAW [None]
